FAERS Safety Report 4826740-8 (Version None)
Quarter: 2005Q4

REPORT INFORMATION
  Report Type: 
  Country: None (occurrence: None)
  Receive Date: 20051111
  Receipt Date: 20051111
  Transmission Date: 20060501
  Serious: Yes (Hospitalization)
  Sender: FDA-Public Use
  Company Number: None

PATIENT
  Sex: Male
  Weight: 78.4723 kg

DRUGS (5)
  1. AVAPRO [Suspect]
     Indication: HYPERTENSION
     Dosage: 150 MG   DAILY   PO
     Route: 048
     Dates: start: 20050822, end: 20050902
  2. COUMADIN [Concomitant]
  3. ASPIRIN [Concomitant]
  4. DIGOXIN [Concomitant]
  5. ATENOLOL [Concomitant]

REACTIONS (7)
  - ANGIONEUROTIC OEDEMA [None]
  - BLOOD PRESSURE DECREASED [None]
  - DYSPNOEA [None]
  - PROTHROMBIN TIME PROLONGED [None]
  - RASH [None]
  - RESPIRATORY RATE INCREASED [None]
  - URTICARIA [None]
